FAERS Safety Report 7764388-6 (Version None)
Quarter: 2011Q3

REPORT INFORMATION
  Report Type: 
  Country: None (occurrence: None)
  Receive Date: 20110921
  Receipt Date: 20110909
  Transmission Date: 20111222
  Serious: Yes (Hospitalization, Other)
  Sender: FDA-Public Use
  Company Number: DE-UCBSA-036650

PATIENT
  Age: 56 Year
  Sex: Male
  Weight: 25.8 kg

DRUGS (8)
  1. CERTOLIZUMAB PEGOL [Suspect]
     Indication: RHEUMATOID ARTHRITIS
     Dosage: SINCE ??/MAR/2011 200 MG EVERY 2 WEEKS
     Route: 058
     Dates: start: 20100915, end: 20110414
  2. IBUFLAM [Concomitant]
     Indication: OSTEOARTHRITIS
     Dosage: UP TO 3 X DAY
     Route: 048
  3. LEFLUNOMIDE [Concomitant]
     Indication: RHEUMATOID ARTHRITIS
     Route: 048
     Dates: start: 20100419
  4. TORSEMIDE [Concomitant]
     Indication: HYPERTENSION
     Route: 048
  5. PREDNISONE [Concomitant]
     Indication: RHEUMATOID ARTHRITIS
     Route: 048
  6. CARVEDILOL [Concomitant]
     Indication: HYPERTENSION
     Route: 048
  7. LEFLUNOMIDE [Concomitant]
     Route: 048
     Dates: start: 20040501, end: 20100401
  8. EFEROX [Concomitant]
     Indication: HYPOTHYROIDISM
     Route: 048
     Dates: start: 20100401

REACTIONS (1)
  - LUNG INFILTRATION [None]
